FAERS Safety Report 5905553-X (Version None)
Quarter: 2008Q4

REPORT INFORMATION
  Report Type: 
  Country: None (occurrence: None)
  Receive Date: 20081001
  Receipt Date: 20081001
  Transmission Date: 20090506
  Serious: No
  Sender: FDA-Public Use
  Company Number: None

PATIENT
  Age: 65 Year
  Sex: Male

DRUGS (1)
  1. LORAZEPAM [Suspect]
     Indication: PANIC ATTACK
     Dosage: 2.5 MG ONCE IV
     Route: 042
     Dates: start: 20080422

REACTIONS (4)
  - CARDIO-RESPIRATORY ARREST [None]
  - MALNUTRITION [None]
  - MEDICATION ERROR [None]
  - PNEUMONIA ASPIRATION [None]
